FAERS Safety Report 25529095 (Version 3)
Quarter: 2025Q3

REPORT INFORMATION
  Report Type: Report from Study
  Country: IN (occurrence: IN)
  Receive Date: 20250708
  Receipt Date: 20250902
  Transmission Date: 20251020
  Serious: No
  Sender: NOVARTIS
  Company Number: IN-002147023-NVSC2025IN090498

PATIENT
  Sex: Female

DRUGS (2)
  1. RIBOCICLIB [Suspect]
     Active Substance: RIBOCICLIB
     Indication: Breast cancer metastatic
     Dosage: 600 MG, QD
     Route: 048
     Dates: start: 20230108
  2. RIBOCICLIB [Suspect]
     Active Substance: RIBOCICLIB
     Dosage: 600 MG, QD
     Route: 048
     Dates: start: 20230808

REACTIONS (3)
  - Body mass index abnormal [Unknown]
  - Blood pressure systolic abnormal [Unknown]
  - Blood pressure diastolic abnormal [Unknown]
